FAERS Safety Report 22277053 (Version 6)
Quarter: 2023Q4

REPORT INFORMATION
  Report Type: Other
  Country: RO (occurrence: None)
  Receive Date: 20230503
  Receipt Date: 20231116
  Transmission Date: 20240109
  Serious: Yes (Death, Hospitalization)
  Sender: FDA-Public Use
  Company Number: RO-ROCHE-3341486

PATIENT
  Age: 57 Year
  Sex: Male
  Weight: 80 kg

DRUGS (23)
  1. ATEZOLIZUMAB [Suspect]
     Active Substance: ATEZOLIZUMAB
     Indication: Hepatocellular carcinoma
     Dosage: MOST RECENT DOSE OF STUDY DRUG PRIOR TO AE: 04/APR/2023
     Route: 041
     Dates: start: 20230217, end: 20230430
  2. BEVACIZUMAB [Suspect]
     Active Substance: BEVACIZUMAB
     Indication: Hepatocellular carcinoma
     Route: 042
     Dates: start: 20230217
  3. ENTECAVIR [Concomitant]
     Active Substance: ENTECAVIR
     Dates: start: 20230203, end: 20230427
  4. DIETARY SUPPLEMENT\HERBALS\MILK THISTLE [Concomitant]
     Active Substance: MILK THISTLE
     Dates: start: 20230203
  5. URSODIOL [Concomitant]
     Active Substance: URSODIOL
     Dates: start: 20230203, end: 20230427
  6. AMLODIPINE BESYLATE\PERINDOPRIL ARGININE [Concomitant]
     Active Substance: AMLODIPINE BESYLATE\PERINDOPRIL ARGININE
     Dates: end: 20230427
  7. METOPROLOL [Concomitant]
     Active Substance: METOPROLOL
     Dates: start: 20230217, end: 20230427
  8. DEXAMETHASONE [Concomitant]
     Active Substance: DEXAMETHASONE
     Dates: start: 20230427, end: 20230430
  9. CEFTRIAXONE SODIUM [Concomitant]
     Active Substance: CEFTRIAXONE SODIUM
     Dates: start: 20230427, end: 20230427
  10. ACETAMINOPHEN [Concomitant]
     Active Substance: ACETAMINOPHEN
     Dates: start: 20230427, end: 20230427
  11. PANTOPRAZOLE [Concomitant]
     Active Substance: PANTOPRAZOLE
     Dates: start: 20230427, end: 20230430
  12. LEVETIRACETAM [Concomitant]
     Active Substance: LEVETIRACETAM
     Dates: start: 20230428, end: 20230430
  13. FRAGMIN [Concomitant]
     Active Substance: DALTEPARIN SODIUM
     Dates: start: 20230428, end: 20230430
  14. LINEZOLID [Concomitant]
     Active Substance: LINEZOLID
     Dates: start: 20230428, end: 20230430
  15. MEROPENEM [Concomitant]
     Active Substance: MEROPENEM
     Dates: start: 20230428, end: 20230430
  16. MIDAZOLAM [Concomitant]
     Active Substance: MIDAZOLAM
     Dates: start: 20230428, end: 20230430
  17. PROPOFOL [Concomitant]
     Active Substance: PROPOFOL
     Dates: start: 20230428, end: 20230430
  18. FENTANYL [Concomitant]
     Active Substance: FENTANYL\FENTANYL CITRATE
     Dates: start: 20230428, end: 20230430
  19. NOREPINEPHRINE [Concomitant]
     Active Substance: NOREPINEPHRINE
     Dates: start: 20230428
  20. NOREPINEPHRINE [Concomitant]
     Active Substance: NOREPINEPHRINE
     Dates: start: 20230429, end: 20230430
  21. ROCURONIUM BROMIDE [Concomitant]
     Active Substance: ROCURONIUM BROMIDE
     Dates: start: 20230429, end: 20230430
  22. DEXTROSE [Concomitant]
     Active Substance: DEXTROSE\DEXTROSE MONOHYDRATE
     Dates: start: 20230429, end: 20230430
  23. RIFAXIMIN [Concomitant]
     Active Substance: RIFAXIMIN
     Dates: start: 20230428, end: 20230430

REACTIONS (2)
  - Encephalopathy [Fatal]
  - Dizziness [Not Recovered/Not Resolved]

NARRATIVE: CASE EVENT DATE: 20230301
